FAERS Safety Report 4373066-5 (Version None)
Quarter: 2004Q2

REPORT INFORMATION
  Report Type: 
  Country: None (occurrence: None)
  Receive Date: 20040603
  Receipt Date: 20040514
  Transmission Date: 20050107
  Serious: Yes (Other)
  Sender: FDA-Public Use
  Company Number: US_0404102609

PATIENT
  Age: 58 Year
  Sex: Female
  Weight: 38 kg

DRUGS (4)
  1. EVISTA [Suspect]
  2. FOSAMAX [Concomitant]
  3. ACTONEL [Concomitant]
  4. CALCIUM [Concomitant]

REACTIONS (1)
  - NO ADVERSE DRUG EFFECT [None]
